FAERS Safety Report 7347421-5 (Version None)
Quarter: 2011Q1

REPORT INFORMATION
  Report Type: 
  Country: None (occurrence: None)
  Receive Date: 20110223
  Receipt Date: 20110211
  Transmission Date: 20110831
  Serious: Yes (Hospitalization)
  Sender: FDA-Public Use
  Company Number: 2010PROUSA00085

PATIENT
  Age: 77 Year
  Sex: Male
  Weight: 65.5 kg

DRUGS (16)
  1. DILAUDID [Concomitant]
  2. TORADOL [Concomitant]
  3. TRELSTAR (TRIPTORELIN EMBONATE) [Concomitant]
  4. PROVENGE [Suspect]
     Indication: PROSTATE CANCER METASTATIC
     Dosage: 250 ML, SINGLE, INTRAVENOUS
     Route: 042
     Dates: start: 20100927, end: 20100927
  5. PROVENGE [Suspect]
     Indication: PROSTATE CANCER METASTATIC
     Dosage: 250 ML, SINGLE, INTRAVENOUS
     Route: 042
     Dates: start: 20100812, end: 20100812
  6. CLARITHROMYCIN [Concomitant]
  7. RELISTOR (METHYLNALTREXONE BROMIDE) [Concomitant]
  8. RESTORIL /00393701/ (TEMAZEPAM) [Concomitant]
  9. PROVENGE [Suspect]
  10. METOCLOPRAMIDE [Concomitant]
  11. OXYCODONE (OXYCODONE) [Concomitant]
  12. PANTOPRAZOLE [Concomitant]
  13. AMOXICILLIN [Concomitant]
  14. MIRALAX [Concomitant]
  15. ZOFRAN /00955301/ (ONDANSETRON) [Concomitant]
  16. ATIVAN [Concomitant]

REACTIONS (15)
  - HELICOBACTER GASTRITIS [None]
  - MENISCUS LESION [None]
  - LIVER FUNCTION TEST ABNORMAL [None]
  - APHAGIA [None]
  - BACTERAEMIA [None]
  - BLOOD ALKALINE PHOSPHATASE INCREASED [None]
  - WEIGHT DECREASED [None]
  - BLOOD CALCIUM DECREASED [None]
  - BONE PAIN [None]
  - BLOOD LACTATE DEHYDROGENASE INCREASED [None]
  - BLOOD BILIRUBIN INCREASED [None]
  - BLOOD CREATININE INCREASED [None]
  - ANAEMIA [None]
  - CONFUSIONAL STATE [None]
  - BLOOD UREA INCREASED [None]
